FAERS Safety Report 7935414-6 (Version None)
Quarter: 2011Q4

REPORT INFORMATION
  Report Type: 
  Country: None (occurrence: None)
  Receive Date: 20111122
  Receipt Date: 20111114
  Transmission Date: 20120403
  Serious: Yes (Other)
  Sender: FDA-Public Use
  Company Number: US-MERCK-1111USA01742

PATIENT
  Age: 78 Year
  Sex: Male

DRUGS (2)
  1. COZAAR [Suspect]
     Indication: BLOOD PRESSURE DECREASED
     Route: 048
     Dates: start: 20091001
  2. LIPITOR [Concomitant]
     Route: 065

REACTIONS (3)
  - CONVULSION [None]
  - WEIGHT DECREASED [None]
  - BLOOD PRESSURE DECREASED [None]
